FAERS Safety Report 4320062-X (Version None)
Quarter: 2004Q1

REPORT INFORMATION
  Report Type: 
  Country: None (occurrence: None)
  Receive Date: 20040317
  Receipt Date: 20040308
  Transmission Date: 20041129
  Serious: Yes (Other)
  Sender: FDA-Public Use
  Company Number: K200400324

PATIENT
  Age: 32 Year
  Sex: Female
  Weight: 60.3 kg

DRUGS (4)
  1. LEVOXYL [Suspect]
     Indication: HYPOTHYROIDISM
     Dosage: 75 MCG, QD, ORAL : 50 MCG, QD, ORAL : 75 MCG, QOD, ORAL: 50 MCG, QOD, ORAL
     Route: 048
     Dates: start: 20030101, end: 20040101
  2. LEVOXYL [Suspect]
     Indication: HYPOTHYROIDISM
     Dosage: 75 MCG, QD, ORAL : 50 MCG, QD, ORAL : 75 MCG, QOD, ORAL: 50 MCG, QOD, ORAL
     Route: 048
     Dates: start: 20040101, end: 20040306
  3. LEVOXYL [Suspect]
     Indication: HYPOTHYROIDISM
     Dosage: 75 MCG, QD, ORAL : 50 MCG, QD, ORAL : 75 MCG, QOD, ORAL: 50 MCG, QOD, ORAL
     Route: 048
     Dates: start: 20040306
  4. LEVOXYL [Suspect]
     Indication: HYPOTHYROIDISM
     Dosage: 75 MCG, QD, ORAL : 50 MCG, QD, ORAL : 75 MCG, QOD, ORAL: 50 MCG, QOD, ORAL
     Route: 048
     Dates: start: 20040306

REACTIONS (7)
  - ABORTION SPONTANEOUS [None]
  - BLOOD THYROID STIMULATING HORMONE DECREASED [None]
  - BLOOD THYROID STIMULATING HORMONE INCREASED [None]
  - COMPLICATIONS OF MATERNAL EXPOSURE TO THERAPEUTIC DRUGS [None]
  - MATERNAL DRUGS AFFECTING FOETUS [None]
  - MENSTRUATION IRREGULAR [None]
  - PREGNANCY [None]
